FAERS Safety Report 6830087-8 (Version None)
Quarter: 2010Q3

REPORT INFORMATION
  Report Type: 
  Country: None (occurrence: None)
  Receive Date: 20100711
  Receipt Date: 20100519
  Transmission Date: 20110219
  Serious: No
  Sender: FDA-Public Use
  Company Number: US-ALLERGAN-1006539US

PATIENT
  Sex: Female

DRUGS (3)
  1. LATISSE [Suspect]
     Indication: GROWTH OF EYELASHES
     Dosage: 1 GTT, QHS
  2. VITAMIN E                          /00110501/ [Concomitant]
     Dosage: UNK
  3. CALCIUM CARBONATE [Concomitant]

REACTIONS (1)
  - TRICHORRHEXIS [None]
